FAERS Safety Report 7334358-0 (Version None)
Quarter: 2011Q1

REPORT INFORMATION
  Report Type: 
  Country: None (occurrence: None)
  Receive Date: 20110307
  Receipt Date: 20110114
  Transmission Date: 20110831
  Serious: No
  Sender: FDA-Public Use
  Company Number: US-KINGPHARMUSA00001-K201100070

PATIENT
  Sex: Female
  Weight: 56.689 kg

DRUGS (6)
  1. EMBEDA [Suspect]
     Indication: ARTHRALGIA
     Dosage: 100 MG, BID
     Route: 048
     Dates: start: 20110113, end: 20110101
  2. ALBUTEROL [Concomitant]
     Indication: CHRONIC OBSTRUCTIVE PULMONARY DISEASE
     Dosage: UNK
  3. POTASSIUM [Concomitant]
     Indication: MINERAL SUPPLEMENTATION
     Dosage: UNK
  4. SPIRIVA [Concomitant]
     Indication: CHRONIC OBSTRUCTIVE PULMONARY DISEASE
  5. HYDROCHLOROTHIAZIDE [Concomitant]
     Indication: HYPERTENSION
     Dosage: 12.5 MG, UNK
  6. COMBIVENT [Concomitant]
     Indication: CHRONIC OBSTRUCTIVE PULMONARY DISEASE
     Dosage: UNK

REACTIONS (10)
  - DIZZINESS [None]
  - INAPPROPRIATE AFFECT [None]
  - MIDDLE INSOMNIA [None]
  - EUPHORIC MOOD [None]
  - BURNING SENSATION [None]
  - MUCOUS MEMBRANE DISORDER [None]
  - PAIN [None]
  - THIRST [None]
  - ANXIETY [None]
  - NERVOUSNESS [None]
